FAERS Safety Report 7202983-3 (Version None)
Quarter: 2010Q4

REPORT INFORMATION
  Report Type: 
  Country: None (occurrence: None)
  Receive Date: 20101229
  Receipt Date: 20101222
  Transmission Date: 20110411
  Serious: Yes (Other)
  Sender: FDA-Public Use
  Company Number: CA-PFIZER INC-2010145949

PATIENT
  Age: 57 Year
  Sex: Female
  Weight: 77 kg

DRUGS (7)
  1. CHAMPIX [Suspect]
     Indication: SMOKING CESSATION THERAPY
     Dosage: 1 MG, 2X/DAY
     Dates: start: 20100325
  2. CHAMPIX [Suspect]
     Dosage: 0.5 MG, 2X/DAY
  3. CHAMPIX [Suspect]
     Dosage: 0.5 MG, 1X/DAY
  4. EFFEXOR XR [Concomitant]
     Dosage: 150 MG, 1X/DAY
     Dates: start: 20050101
  5. LOPRESSOR [Concomitant]
     Dosage: 50 MG, 2X/DAY
  6. AVAPRO [Concomitant]
     Dosage: 300 MG, 1X/DAY
  7. NIACIN [Concomitant]
     Dosage: UNK

REACTIONS (4)
  - ANXIETY [None]
  - DEPRESSION [None]
  - MIDDLE INSOMNIA [None]
  - WITHDRAWAL SYNDROME [None]
